FAERS Safety Report 4968806-8 (Version None)
Quarter: 2006Q2

REPORT INFORMATION
  Report Type: 
  Country: None (occurrence: None)
  Receive Date: 20060411
  Receipt Date: 20060313
  Transmission Date: 20061013
  Serious: Yes (Hospitalization)
  Sender: FDA-Public Use
  Company Number: JP-JPN-A200600936

PATIENT
  Age: 91 Year
  Sex: Female
  Weight: 28 kg

DRUGS (3)
  1. PAXIL [Suspect]
     Indication: DEPRESSION
     Dosage: 10MG PER DAY
     Route: 048
     Dates: start: 20060303, end: 20060303
  2. ARICEPT [Concomitant]
     Indication: DEMENTIA ALZHEIMER'S TYPE
     Dosage: 5MG PER DAY
     Route: 048
  3. CONIEL [Concomitant]
     Indication: HYPERTENSION
     Dosage: 4MG PER DAY
     Route: 048

REACTIONS (2)
  - PHARYNGEAL OEDEMA [None]
  - WHEEZING [None]
